FAERS Safety Report 8721578 (Version 2)
Quarter: 2012Q4

REPORT INFORMATION
  Report Type: 
  Country: US (occurrence: US)
  Receive Date: 20120814
  Receipt Date: 20120903
  Transmission Date: 20130627
  Serious: Yes (Hospitalization)
  Sender: FDA-Public Use
  Company Number: US-BIOGENIDEC-2012BI030085

PATIENT
  Age: 50 Year
  Sex: Female

DRUGS (11)
  1. TYSABRI [Suspect]
     Indication: MULTIPLE SCLEROSIS
     Route: 042
     Dates: start: 20090824
  2. DILANTIN [Concomitant]
  3. LEXAPRO [Concomitant]
  4. KLONOPIN [Concomitant]
  5. CALCIUM PLUS D [Concomitant]
  6. ALPRAZOLAM [Concomitant]
  7. FOLTX [Concomitant]
  8. TYLENOL [Concomitant]
  9. VITAMIN D3 [Concomitant]
  10. MULTIVITAMIN [Concomitant]
  11. IBUPROFEN [Concomitant]

REACTIONS (4)
  - Asthenia [Not Recovered/Not Resolved]
  - Dysphagia [Unknown]
  - Pneumonia [Recovered/Resolved]
  - Peroneal nerve palsy [Unknown]
